FAERS Safety Report 16696870 (Version 4)
Quarter: 2019Q4

REPORT INFORMATION
  Report Type: Spontaneous
  Country: US (occurrence: US)
  Receive Date: 20190813
  Receipt Date: 20191004
  Transmission Date: 20200122
  Serious: Yes (Other)
  Sender: FDA-Public Use
  Company Number: US-BAYER-2019-139590

PATIENT
  Age: 31 Year
  Sex: Male

DRUGS (4)
  1. KOGENATE FS [Suspect]
     Active Substance: ANTIHEMOPHILIC FACTOR, HUMAN RECOMBINANT
     Indication: FACTOR VIII DEFICIENCY
     Dosage: 4000 U, ONCE (BEFORE SURGERY)
     Route: 042
     Dates: start: 201907, end: 201907
  2. KOGENATE FS [Suspect]
     Active Substance: ANTIHEMOPHILIC FACTOR, HUMAN RECOMBINANT
     Indication: FACTOR VIII DEFICIENCY
     Dosage: 50 UNITS PER KG (APPROXIMATELY 4200 UNITS) AFTER SURGERY
     Route: 042
     Dates: start: 20190725, end: 20190725
  3. KOGENATE FS [Suspect]
     Active Substance: ANTIHEMOPHILIC FACTOR, HUMAN RECOMBINANT
     Indication: FACTOR VIII DEFICIENCY
     Dosage: 2000 U, QOD
     Route: 042
     Dates: end: 201907
  4. KOGENATE FS [Suspect]
     Active Substance: ANTIHEMOPHILIC FACTOR, HUMAN RECOMBINANT
     Indication: FACTOR VIII DEFICIENCY
     Dosage: 2000 U, QOD
     Route: 042
     Dates: start: 20190714, end: 201907

REACTIONS (11)
  - Post procedural haemorrhage [None]
  - Headache [Not Recovered/Not Resolved]
  - Procedural pain [Recovering/Resolving]
  - Odynophagia [Not Recovered/Not Resolved]
  - Swelling [Not Recovered/Not Resolved]
  - Sinus disorder [Not Recovered/Not Resolved]
  - Recalled product administered [None]
  - Auditory disorder [Not Recovered/Not Resolved]
  - Nasal septal operation [None]
  - Neck pain [Not Recovered/Not Resolved]
  - Recalled product [None]

NARRATIVE: CASE EVENT DATE: 2019
